FAERS Safety Report 9963051 (Version 1)
Quarter: 2014Q1

REPORT INFORMATION
  Report Type: Spontaneous
  Country: IT (occurrence: IT)
  Receive Date: 20140305
  Receipt Date: 20140305
  Transmission Date: 20141002
  Serious: Yes (Hospitalization)
  Sender: FDA-Public Use
  Company Number: IT-CUBIST PHARMACEUTICAL, INC.-2014CBST000308

PATIENT
  Sex: 0

DRUGS (13)
  1. CUBICIN [Suspect]
     Indication: TOXIC SHOCK SYNDROME STAPHYLOCOCCAL
     Dosage: 8 MG/KG, ONCE A DAY
     Route: 042
  2. CUBICIN [Suspect]
     Indication: ENDOCARDITIS STAPHYLOCOCCAL
  3. CUBICIN [Suspect]
     Indication: MUSCLE ABSCESS
  4. CUBICIN [Suspect]
     Indication: OFF LABEL USE
  5. LINEZOLID [Concomitant]
     Indication: TOXIC SHOCK SYNDROME STAPHYLOCOCCAL
     Dosage: 600 MG, BID
     Route: 042
  6. LINEZOLID [Concomitant]
     Indication: ENDOCARDITIS STAPHYLOCOCCAL
  7. LINEZOLID [Concomitant]
     Indication: MUSCLE ABSCESS
  8. MEROPENEM [Concomitant]
     Indication: TOXIC SHOCK SYNDROME STAPHYLOCOCCAL
     Dosage: 1 G, TID
     Route: 042
  9. MEROPENEM [Concomitant]
     Indication: ENDOCARDITIS STAPHYLOCOCCAL
  10. MEROPENEM [Concomitant]
     Indication: MUSCLE ABSCESS
  11. CEFAZOLIN [Concomitant]
     Indication: TOXIC SHOCK SYNDROME STAPHYLOCOCCAL
     Dosage: 2 G, Q8H
     Route: 065
  12. CEFAZOLIN [Concomitant]
     Indication: ENDOCARDITIS STAPHYLOCOCCAL
  13. CEFAZOLIN [Concomitant]
     Indication: MUSCLE ABSCESS

REACTIONS (2)
  - Condition aggravated [Recovered/Resolved]
  - Cardiac valve vegetation [Recovered/Resolved]
